FAERS Safety Report 6982666-5 (Version None)
Quarter: 2010Q3

REPORT INFORMATION
  Report Type: 
  Country: None (occurrence: None)
  Receive Date: 20100914
  Receipt Date: 20100322
  Transmission Date: 20110219
  Serious: No
  Sender: FDA-Public Use
  Company Number: US-PFIZER INC-2010018653

PATIENT
  Sex: Female
  Weight: 49.887 kg

DRUGS (4)
  1. LYRICA [Suspect]
     Indication: PAIN IN EXTREMITY
     Dosage: 75 MG DAILY
     Route: 048
     Dates: start: 20090101, end: 20100209
  2. VYTORIN [Concomitant]
     Indication: BLOOD CHOLESTEROL INCREASED
     Dosage: [EZETIMIBE 10 MG]/[SIMVASTATIN 40 MG] DAILY
     Route: 048
  3. NIASPAN [Concomitant]
     Indication: CORONARY ARTERIAL STENT INSERTION
     Dosage: UNK
  4. ZOLOFT [Concomitant]
     Indication: ANXIETY
     Dosage: 50 MG, UNK
     Route: 048

REACTIONS (3)
  - DIZZINESS [None]
  - DRUG INEFFECTIVE [None]
  - INSOMNIA [None]
